FAERS Safety Report 14471684 (Version 1)
Quarter: 2018Q1

REPORT INFORMATION
  Report Type: Spontaneous
  Country: EG (occurrence: EG)
  Receive Date: 20180131
  Receipt Date: 20180131
  Transmission Date: 20180509
  Serious: Yes (Death, Other)
  Sender: FDA-Public Use
  Company Number: EG-MYLANLABS-2018M1006213

PATIENT
  Age: 59 Year
  Sex: Male

DRUGS (3)
  1. FLUOROURACIL. [Suspect]
     Active Substance: FLUOROURACIL
     Indication: ADENOID CYSTIC CARCINOMA
     Dosage: INDUCTION THERAPY ON DAY 1-DAY 4 AT 1000MG/M2; FOR 2 CYCLES
     Route: 065
  2. CISPLATIN. [Suspect]
     Active Substance: CISPLATIN
     Indication: ADENOID CYSTIC CARCINOMA
     Dosage: INDUCTION THERAPY ON DAY 1 AT 100MG/M2; FOR 2 CYCLES
     Route: 065
  3. DOCETAXEL. [Suspect]
     Active Substance: DOCETAXEL
     Indication: ADENOID CYSTIC CARCINOMA
     Dosage: INDUCTION THERAPY ON DAY 1 AT 80MG/M2; FOR 2 CYCLES
     Route: 065

REACTIONS (3)
  - Mucosal inflammation [Fatal]
  - Diarrhoea [Fatal]
  - Neutropenia [Fatal]
